FAERS Safety Report 7526212-6 (Version None)
Quarter: 2011Q2

REPORT INFORMATION
  Report Type: 
  Country: None (occurrence: None)
  Receive Date: 20110527
  Receipt Date: 20110520
  Transmission Date: 20111010
  Serious: Yes (Death)
  Sender: FDA-Public Use
  Company Number: UTC-007336

PATIENT
  Age: 59 Year
  Sex: Female

DRUGS (5)
  1. TRACLEER [Concomitant]
  2. COUMADIN [Concomitant]
  3. TYVASO [Suspect]
     Indication: COR PULMONALE CHRONIC
     Dosage: (3-9 BREATHS),INHALATION
     Route: 055
     Dates: start: 20100609, end: 20110505
  4. DIURETICS (DIURETICS) [Concomitant]
  5. REVATIO [Concomitant]

REACTIONS (1)
  - DEATH [None]
